FAERS Safety Report 12917540 (Version 1)
Quarter: 2016Q4

REPORT INFORMATION
  Report Type: Spontaneous
  Country: PL (occurrence: PL)
  Receive Date: 20161107
  Receipt Date: 20161107
  Transmission Date: 20170207
  Serious: Yes (Hospitalization, Congenital Anomaly, Other)
  Sender: FDA-Public Use
  Company Number: PHHY2016PL149886

PATIENT

DRUGS (4)
  1. SULPHADIAZINE [Suspect]
     Active Substance: SULFADIAZINE
     Indication: PRODUCT USED FOR UNKNOWN INDICATION
     Route: 064
  2. DARAPRIM [Suspect]
     Active Substance: PYRIMETHAMINE
     Indication: PRODUCT USED FOR UNKNOWN INDICATION
     Route: 064
  3. ACIDUM FOLICUM [Suspect]
     Active Substance: FOLIC ACID
     Indication: PRODUCT USED FOR UNKNOWN INDICATION
     Route: 064
  4. OMEPRAZOL [Suspect]
     Active Substance: OMEPRAZOLE
     Indication: PRODUCT USED FOR UNKNOWN INDICATION
     Route: 064

REACTIONS (4)
  - Congenital toxoplasmosis [Unknown]
  - Premature baby [Unknown]
  - Congenital central nervous system anomaly [Unknown]
  - Foetal exposure during pregnancy [Unknown]
